FAERS Safety Report 6530680-6 (Version None)
Quarter: 2010Q1

REPORT INFORMATION
  Report Type: 
  Country: None (occurrence: None)
  Receive Date: 20100108
  Receipt Date: 20081118
  Transmission Date: 20100710
  Serious: No
  Sender: FDA-Public Use
  Company Number: A0757228A

PATIENT
  Sex: Female

DRUGS (1)
  1. LOVAZA [Suspect]
     Route: 048
     Dates: start: 20080901

REACTIONS (2)
  - GLOSSODYNIA [None]
  - OROPHARYNGEAL PAIN [None]
